FAERS Safety Report 5463261-6 (Version None)
Quarter: 2007Q3

REPORT INFORMATION
  Report Type: 
  Country: None (occurrence: None)
  Receive Date: 20070920
  Receipt Date: 20070918
  Transmission Date: 20080115
  Serious: Yes (Other)
  Sender: FDA-Public Use
  Company Number: TR-BRISTOL-MYERS SQUIBB COMPANY-13911441

PATIENT
  Age: 63 Year
  Sex: Female

DRUGS (3)
  1. PROLIXIN DECANOATE [Suspect]
     Indication: SCHIZOPHRENIA
     Dosage: DOSE- 1*1/2. FIRST DOSE WAS ADMINISTERED ON 15-JUN-2007.
     Route: 030
     Dates: start: 20070715, end: 20070715
  2. SEROQUEL [Concomitant]
     Dosage: DOSE- 1*1/2.
     Route: 048
     Dates: start: 20070101
  3. DIPHENHYDRAMINE HCL [Concomitant]

REACTIONS (3)
  - INSOMNIA [None]
  - MALAISE [None]
  - TREMOR [None]
